FAERS Safety Report 9856799 (Version 1)
Quarter: 2014Q1

REPORT INFORMATION
  Report Type: Spontaneous
  Country: US (occurrence: US)
  Receive Date: 20140130
  Receipt Date: 20140130
  Transmission Date: 20141002
  Serious: No
  Sender: FDA-Public Use
  Company Number: US-GILEAD-2014-0093369

PATIENT
  Sex: Female

DRUGS (1)
  1. LETAIRIS [Suspect]
     Dosage: 10 MG, QD
     Route: 065
     Dates: start: 20110402

REACTIONS (3)
  - Insomnia [Unknown]
  - Knee operation [Unknown]
  - Pruritus [Unknown]
